FAERS Safety Report 9276646 (Version 2)
Quarter: 2013Q2

REPORT INFORMATION
  Report Type: Spontaneous
  Country: JP (occurrence: JP)
  Receive Date: 20130507
  Receipt Date: 20130514
  Transmission Date: 20140414
  Serious: Yes (Other)
  Sender: FDA-Public Use
  Company Number: JP-ALEXION-A201300928

PATIENT
  Age: 67 Year
  Sex: Male

DRUGS (2)
  1. SOLIRIS 300MG [Suspect]
     Indication: PAROXYSMAL NOCTURNAL HAEMOGLOBINURIA
     Dosage: 900 MG, Q2W
     Route: 042
     Dates: start: 20130109
  2. PREDONINE [Concomitant]
     Dosage: 10 MG, QD
     Dates: start: 2002

REACTIONS (3)
  - Refractory cytopenia with multilineage dysplasia [Unknown]
  - Myelodysplastic syndrome [Not Recovered/Not Resolved]
  - Drug ineffective [Unknown]
